FAERS Safety Report 5675146-0 (Version None)
Quarter: 2008Q2

REPORT INFORMATION
  Report Type: 
  Country: None (occurrence: None)
  Receive Date: 20080303
  Receipt Date: 20070125
  Transmission Date: 20081010
  Serious: Yes (Death)
  Sender: FDA-Public Use
  Company Number: RB-4922-2007

PATIENT
  Age: 43 Year
  Sex: Female
  Weight: 51.2565 kg

DRUGS (5)
  1. SUBOXONE [Suspect]
     Indication: DRUG DEPENDENCE
     Dosage: 8 MG BID SUBLINGUAL, 8 MG TID SUBLINGUAL
     Route: 060
     Dates: start: 20060110, end: 20060129
  2. SUBOXONE [Suspect]
     Indication: DRUG DEPENDENCE
     Dosage: 8 MG BID SUBLINGUAL, 8 MG TID SUBLINGUAL
     Route: 060
     Dates: start: 20060130, end: 20060909
  3. XANAX [Concomitant]
  4. ANTIDEPRESSANTS [Concomitant]
  5. SEROQUEL [Concomitant]

REACTIONS (1)
  - ROAD TRAFFIC ACCIDENT [None]
